FAERS Safety Report 10094303 (Version 1)
Quarter: 2014Q2

REPORT INFORMATION
  Report Type: Spontaneous
  Country: US (occurrence: None)
  Receive Date: 20140421
  Receipt Date: 20140421
  Transmission Date: 20141212
  Serious: Yes (Disabling, Other)
  Sender: FDA-Public Use
  Company Number: None

PATIENT
  Age: 56 Year
  Sex: Female
  Weight: 76.66 kg

DRUGS (1)
  1. LEVOFLOXACIN [Suspect]
     Route: 048
     Dates: start: 20130402, end: 20130406

REACTIONS (16)
  - Confusional state [None]
  - Rash [None]
  - Insomnia [None]
  - Pain in extremity [None]
  - Gait disturbance [None]
  - Arthralgia [None]
  - Pain [None]
  - Gait disturbance [None]
  - Pain in extremity [None]
  - Muscular weakness [None]
  - Tendon disorder [None]
  - Local swelling [None]
  - Pain [None]
  - Tendon injury [None]
  - Quality of life decreased [None]
  - Mental disorder [None]
